FAERS Safety Report 25707930 (Version 3)
Quarter: 2025Q4

REPORT INFORMATION
  Report Type: Report from Study
  Country: US (occurrence: None)
  Receive Date: 20250820
  Receipt Date: 20251027
  Transmission Date: 20260118
  Serious: Yes (Disabling, Other)
  Sender: UCB
  Company Number: US-UCBSA-2025050268

PATIENT
  Age: 80 Year
  Weight: 57.7 kg

DRUGS (13)
  1. ZILUCOPLAN [Suspect]
     Active Substance: ZILUCOPLAN
     Indication: Myasthenia gravis
     Dosage: 16.6 MILLIGRAM, ONCE DAILY (QD)
  2. ZILUCOPLAN [Suspect]
     Active Substance: ZILUCOPLAN
     Dosage: 23 MILLIGRAM, ONCE DAILY (QD)
  3. MYCOPHENOLIC ACID [Concomitant]
     Active Substance: MYCOPHENOLIC ACID
     Indication: Product used for unknown indication
     Dosage: UNK
  4. PYRIDOSTIGMINE [Concomitant]
     Active Substance: PYRIDOSTIGMINE
     Indication: Product used for unknown indication
     Dosage: UNK
  5. PREDNISONE [Concomitant]
     Active Substance: PREDNISONE
     Indication: Product used for unknown indication
     Dosage: UNK
  6. PREDNISONE [Concomitant]
     Active Substance: PREDNISONE
     Dosage: 40 MILLIGRAM
  7. METOPROLOL [Concomitant]
     Active Substance: METOPROLOL
     Indication: Product used for unknown indication
     Dosage: UNK
  8. GABAPENTIN [Concomitant]
     Active Substance: GABAPENTIN
     Indication: Product used for unknown indication
     Dosage: UNK
  9. LATANOPROST [Concomitant]
     Active Substance: LATANOPROST
     Indication: Product used for unknown indication
     Dosage: UNK
  10. B12 [Concomitant]
     Indication: Product used for unknown indication
     Dosage: UNK, B12 INJECTIONS ONE A MONTH
  11. ASPIRIN [Concomitant]
     Active Substance: ASPIRIN
     Indication: Product used for unknown indication
     Dosage: UNK
  12. CALCIUM [Concomitant]
     Active Substance: CALCIUM
     Indication: Product used for unknown indication
     Dosage: UNK
  13. VITAMIN D [Concomitant]
     Active Substance: VITAMIN D NOS
     Indication: Product used for unknown indication
     Dosage: UNK

REACTIONS (3)
  - Myasthenia gravis [Not Recovered/Not Resolved]
  - Weight decreased [Recovering/Resolving]
  - Drug ineffective [Unknown]
